FAERS Safety Report 4868348-4 (Version None)
Quarter: 2005Q4

REPORT INFORMATION
  Report Type: 
  Country: None (occurrence: None)
  Receive Date: 20051223
  Receipt Date: 20051202
  Transmission Date: 20060501
  Serious: Yes (Other)
  Sender: FDA-Public Use
  Company Number: US200512001050

PATIENT
  Age: 55 Year
  Sex: Female

DRUGS (1)
  1. GEMZAR [Suspect]
     Dosage: 1500 MG
     Dates: start: 20050805, end: 20051007

REACTIONS (9)
  - CONTUSION [None]
  - DEEP VEIN THROMBOSIS [None]
  - HYPOAESTHESIA [None]
  - NAIL DISCOLOURATION [None]
  - NEUROPATHY [None]
  - PAIN [None]
  - SKIN DISCOLOURATION [None]
  - THROMBOCYTOPENIA [None]
  - VASCULITIS [None]
